FAERS Safety Report 17875512 (Version 1)
Quarter: 2020Q2

REPORT INFORMATION
  Report Type: Spontaneous
  Country: US (occurrence: US)
  Receive Date: 20200609
  Receipt Date: 20200609
  Transmission Date: 20200714
  Serious: Yes (Death)
  Sender: FDA-Public Use
  Company Number: US-FARMAPROD-202005-0741

PATIENT
  Age: 58 Year
  Sex: Female
  Weight: 71.28 kg

DRUGS (20)
  1. MIRTAZAPINE. [Concomitant]
     Active Substance: MIRTAZAPINE
  2. TACROLIMUS. [Concomitant]
     Active Substance: TACROLIMUS
  3. BUMETANIDE. [Concomitant]
     Active Substance: BUMETANIDE
  4. MOXIFLOXACIN. [Concomitant]
     Active Substance: MOXIFLOXACIN
  5. ELIQUIS [Concomitant]
     Active Substance: APIXABAN
  6. ACETAMINOPHEN. [Concomitant]
     Active Substance: ACETAMINOPHEN
  7. MAGNESIUM [Concomitant]
     Active Substance: MAGNESIUM
  8. BUPROPION HCL [Concomitant]
     Active Substance: BUPROPION HYDROCHLORIDE
  9. ERYTHROMYCIN. [Concomitant]
     Active Substance: ERYTHROMYCIN
  10. PREDNISONE. [Concomitant]
     Active Substance: PREDNISONE
  11. ZIRGAN [Concomitant]
     Active Substance: GANCICLOVIR
  12. OXYCODONE-ACETAMINOPHEN [Concomitant]
     Active Substance: ACETAMINOPHEN\OXYCODONE HYDROCHLORIDE
  13. VALACYCLOVIR [Concomitant]
     Active Substance: VALACYCLOVIR HYDROCHLORIDE
  14. OMEPRAZOLE. [Concomitant]
     Active Substance: OMEPRAZOLE
  15. OXERVATE [Suspect]
     Active Substance: CENEGERMIN-BKBJ
     Indication: NEUROTROPHIC KERATOPATHY
     Route: 047
     Dates: start: 20200422
  16. PREDNISONE. [Concomitant]
     Active Substance: PREDNISONE
  17. VITAMIN C [Concomitant]
     Active Substance: ASCORBIC ACID
  18. MYCOPHENOLATE MOFETIL. [Concomitant]
     Active Substance: MYCOPHENOLATE MOFETIL
  19. ATORVASTATIN CALCIUM. [Concomitant]
     Active Substance: ATORVASTATIN CALCIUM
  20. METOPROLOL TARTRATE. [Concomitant]
     Active Substance: METOPROLOL TARTRATE

REACTIONS (1)
  - Death [Fatal]

NARRATIVE: CASE EVENT DATE: 20200523
